FAERS Safety Report 7670755-1 (Version None)
Quarter: 2011Q3

REPORT INFORMATION
  Report Type: 
  Country: None (occurrence: None)
  Receive Date: 20110803
  Receipt Date: 20110719
  Transmission Date: 20111222
  Serious: Yes (Life-Threatening, Hospitalization, Other)
  Sender: FDA-Public Use
  Company Number: 2011MA009055

PATIENT
  Age: 25 Year
  Sex: Female

DRUGS (1)
  1. DICLOFENAC SODIUM [Suspect]
     Indication: POSTOPERATIVE ANALGESIA
     Dosage: 75 MG;   ; IV
     Route: 042

REACTIONS (6)
  - RESPIRATORY FAILURE [None]
  - FIBRIN D DIMER [None]
  - TRYPTASE INCREASED [None]
  - ANAPHYLACTIC REACTION [None]
  - PNEUMONITIS [None]
  - BLOOD FIBRINOGEN [None]
